FAERS Safety Report 4471682-3 (Version None)
Quarter: 2004Q4

REPORT INFORMATION
  Report Type: 
  Country: None (occurrence: None)
  Receive Date: 20041012
  Receipt Date: 20041006
  Transmission Date: 20050328
  Serious: Yes (Life-Threatening, Hospitalization, Disabling)
  Sender: FDA-Public Use
  Company Number: US-MERCK-0410USA00860

PATIENT
  Age: 59 Year
  Sex: Female

DRUGS (5)
  1. BUMETANIDE [Concomitant]
     Route: 065
  2. PREMPRO [Concomitant]
     Route: 065
  3. COZAAR [Concomitant]
     Route: 048
  4. TOPROL-XL [Concomitant]
     Route: 065
  5. VIOXX [Suspect]
     Indication: ARTHRALGIA
     Route: 048
     Dates: start: 20000725, end: 20000825

REACTIONS (4)
  - CARDIAC FAILURE CONGESTIVE [None]
  - DIFFICULTY IN WALKING [None]
  - DIZZINESS [None]
  - TREMOR [None]
